FAERS Safety Report 10303001 (Version 1)
Quarter: 2014Q3

REPORT INFORMATION
  Report Type: Spontaneous
  Country: US (occurrence: None)
  Receive Date: 20140710
  Receipt Date: 20140710
  Transmission Date: 20150326
  Serious: Yes (Death, Other)
  Sender: FDA-Public Use
  Company Number: 2014PAC00019

PATIENT
  Age: 75 Year
  Sex: Female

DRUGS (1)
  1. LOSARTAN POTASSIUM. [Suspect]
     Active Substance: LOSARTAN POTASSIUM

REACTIONS (6)
  - Contusion [None]
  - Myocardial infarction [None]
  - Balance disorder [None]
  - Chest discomfort [None]
  - Fall [None]
  - Renal failure [None]
